FAERS Safety Report 23171320 (Version 1)
Quarter: 2023Q4

REPORT INFORMATION
  Report Type: Spontaneous
  Country: AU (occurrence: None)
  Receive Date: 20231110
  Receipt Date: 20231110
  Transmission Date: 20240110
  Serious: Yes (Death, Other)
  Sender: FDA-Public Use
  Company Number: AU-ROCHE-3322884

PATIENT
  Age: 22 Year
  Sex: Female

DRUGS (10)
  1. COBIMETINIB [Suspect]
     Active Substance: COBIMETINIB
     Indication: Spindle cell sarcoma
     Route: 048
  2. COBIMETINIB [Suspect]
     Active Substance: COBIMETINIB
     Indication: Pancreatic disorder
  3. DOXORUBICIN HYDROCHLORIDE [Suspect]
     Active Substance: DOXORUBICIN HYDROCHLORIDE
     Indication: Spindle cell sarcoma
     Route: 065
  4. DOXORUBICIN HYDROCHLORIDE [Suspect]
     Active Substance: DOXORUBICIN HYDROCHLORIDE
     Indication: Pancreatic disorder
  5. DOXYCYCLINE [Suspect]
     Active Substance: DOXYCYCLINE
     Indication: Spindle cell sarcoma
     Route: 065
  6. DOXYCYCLINE [Suspect]
     Active Substance: DOXYCYCLINE
     Indication: Pancreatic disorder
  7. IFOSFAMIDE [Suspect]
     Active Substance: IFOSFAMIDE
     Indication: Spindle cell sarcoma
     Route: 065
  8. IFOSFAMIDE [Suspect]
     Active Substance: IFOSFAMIDE
     Indication: Pancreatic disorder
  9. PAZOPANIB HYDROCHLORIDE [Suspect]
     Active Substance: PAZOPANIB HYDROCHLORIDE
     Indication: Spindle cell sarcoma
     Route: 065
  10. PAZOPANIB HYDROCHLORIDE [Suspect]
     Active Substance: PAZOPANIB HYDROCHLORIDE
     Indication: Pancreatic disorder

REACTIONS (3)
  - Dermatitis acneiform [Unknown]
  - Drug ineffective [Fatal]
  - Photosensitivity reaction [Unknown]
